FAERS Safety Report 5873098-1 (Version None)
Quarter: 2008Q3

REPORT INFORMATION
  Report Type: 
  Country: None (occurrence: None)
  Receive Date: 20080902
  Receipt Date: 20080819
  Transmission Date: 20090109
  Serious: Yes (Disabling)
  Sender: FDA-Public Use
  Company Number: B0367546A

PATIENT
  Sex: Male

DRUGS (7)
  1. ARIXTRA [Suspect]
     Dosage: 75 MG/ PER DAY/ SUBCUTANEOUS
     Route: 058
     Dates: start: 20020605, end: 20020608
  2. AMLODIPINE [Concomitant]
  3. CEFAZOLIN SODIUM [Concomitant]
  4. FERROUS FUMARATE [Concomitant]
  5. SACCARATED IRON OXIDE [Concomitant]
  6. EXTRACT OF E. FAECALIS [Concomitant]
  7. TEPRENONE [Concomitant]

REACTIONS (3)
  - EMBOLIC CEREBRAL INFARCTION [None]
  - SUPRAVENTRICULAR TACHYCARDIA [None]
  - THROMBOTIC CEREBRAL INFARCTION [None]
